FAERS Safety Report 23718350 (Version 1)
Quarter: 2024Q2

REPORT INFORMATION
  Report Type: Spontaneous
  Country: US (occurrence: None)
  Receive Date: 20240405
  Receipt Date: 20240405
  Transmission Date: 20240716
  Serious: Yes (Death, Hospitalization)
  Sender: FDA-Public Use
  Company Number: None

PATIENT
  Age: 59 Year
  Sex: Female

DRUGS (12)
  1. TADALAFIL [Suspect]
     Active Substance: TADALAFIL
     Indication: Pulmonary hypertension
     Dosage: 10MG QD ORAL??STOP: 16 AUG 203
     Route: 048
     Dates: start: 20200521
  2. PRUCALOPRIDE [Concomitant]
     Active Substance: PRUCALOPRIDE
  3. LUBIPROSTONE [Concomitant]
     Active Substance: LUBIPROSTONE
  4. OMEPRAZOLE [Concomitant]
     Active Substance: OMEPRAZOLE
  5. CLEARLAX [Concomitant]
     Active Substance: POLYETHYLENE GLYCOL 3350
  6. ALENDRONATE [Concomitant]
     Active Substance: ALENDRONATE SODIUM
  7. MAGNESIUM OXIDE [Concomitant]
     Active Substance: MAGNESIUM OXIDE
  8. EVEROLIMUS [Concomitant]
     Active Substance: EVEROLIMUS
  9. TACROLIMUS [Concomitant]
     Active Substance: TACROLIMUS
  10. PREDNISONE [Concomitant]
     Active Substance: PREDNISONE
  11. AMLODIPINE [Concomitant]
     Active Substance: AMLODIPINE BESYLATE
  12. ACETAMINOPHEN [Concomitant]
     Active Substance: ACETAMINOPHEN

REACTIONS (4)
  - Small intestinal obstruction [None]
  - Pneumatosis intestinalis [None]
  - Septic shock [None]
  - Intestinal ischaemia [None]

NARRATIVE: CASE EVENT DATE: 20230406
